FAERS Safety Report 9216665 (Version 7)
Quarter: 2014Q2

REPORT INFORMATION
  Report Type: Spontaneous
  Country: US (occurrence: US)
  Receive Date: 20130408
  Receipt Date: 20140627
  Transmission Date: 20141212
  Serious: Yes (Disabling)
  Sender: FDA-Public Use
  Company Number: US-009507513-1304USA001012

PATIENT
  Sex: Male

DRUGS (1)
  1. PROPECIA [Suspect]
     Indication: ANDROGENETIC ALOPECIA
     Dosage: 1 MG, QD
     Route: 048
     Dates: start: 199810, end: 201205

REACTIONS (26)
  - Fall [Unknown]
  - Orgasm abnormal [Unknown]
  - Urogenital atrophy [Unknown]
  - Adverse drug reaction [Unknown]
  - Cognitive disorder [Not Recovered/Not Resolved]
  - Social phobia [Not Recovered/Not Resolved]
  - Pain [Unknown]
  - Pollakiuria [Unknown]
  - Blood triglycerides increased [Unknown]
  - Hypertension [Unknown]
  - Impaired gastric emptying [Unknown]
  - Gastrooesophageal reflux disease [Unknown]
  - Cough [Recovered/Resolved]
  - Migraine [Unknown]
  - Hyperlipidaemia [Unknown]
  - Benign tumour excision [Unknown]
  - Prostatitis [Recovered/Resolved]
  - Hair transplant [Unknown]
  - Anxiety [Not Recovered/Not Resolved]
  - Intervertebral disc protrusion [Unknown]
  - Sexual dysfunction [Unknown]
  - Libido decreased [Unknown]
  - Semen volume decreased [Unknown]
  - Ejaculation disorder [Unknown]
  - Erectile dysfunction [Unknown]
  - Depression [Not Recovered/Not Resolved]
